FAERS Safety Report 6663524-2 (Version None)
Quarter: 2010Q2

REPORT INFORMATION
  Report Type: 
  Country: None (occurrence: None)
  Receive Date: 20100401
  Receipt Date: 20100325
  Transmission Date: 20101027
  Serious: Yes (Hospitalization)
  Sender: FDA-Public Use
  Company Number: JP-BAYER-200811450BYL

PATIENT
  Age: 70 Year
  Sex: Male

DRUGS (19)
  1. NEXAVAR [Suspect]
     Indication: RENAL CELL CARCINOMA
     Dosage: UNIT DOSE: 200 MG
     Route: 048
     Dates: start: 20080606, end: 20080612
  2. NEXAVAR [Suspect]
     Dosage: UNIT DOSE: 200 MG
     Route: 048
     Dates: start: 20080630, end: 20080630
  3. NEXAVAR [Suspect]
     Dosage: UNIT DOSE: 200 MG
     Route: 048
     Dates: start: 20081008
  4. NEXAVAR [Suspect]
     Dosage: UNIT DOSE: 200 MG
     Route: 048
     Dates: start: 20081021, end: 20081208
  5. NEXAVAR [Suspect]
     Dosage: UNIT DOSE: 200 MG
     Route: 048
     Dates: start: 20081209
  6. NEXAVAR [Suspect]
     Dosage: UNIT DOSE: 200 MG
     Route: 048
     Dates: start: 20090123
  7. PREDNISOLONE [Concomitant]
     Indication: RHEUMATOID ARTHRITIS
     Dosage: TOTAL DAILY DOSE: 5 MG  UNIT DOSE: 5 MG
     Route: 048
     Dates: start: 20070101
  8. TATSUPLAMIN [Concomitant]
     Route: 048
     Dates: start: 20070101
  9. PEON [Concomitant]
     Route: 048
     Dates: start: 20070101
  10. FAMOTIDINE [Concomitant]
     Route: 048
     Dates: start: 20070101
  11. SOLETON [Concomitant]
     Route: 048
     Dates: start: 20090401, end: 20091001
  12. OXYCONTIN [Concomitant]
     Route: 048
     Dates: start: 20090807, end: 20090813
  13. OXYCONTIN [Concomitant]
     Route: 048
     Dates: start: 20090814, end: 20090911
  14. DECADRON [Concomitant]
     Route: 048
     Dates: start: 20090812, end: 20091228
  15. DUROTEP [Concomitant]
     Route: 062
     Dates: start: 20090911, end: 20090917
  16. DUROTEP [Concomitant]
     Route: 062
     Dates: start: 20091017, end: 20091021
  17. DUROTEP [Concomitant]
     Route: 062
     Dates: start: 20091022, end: 20091228
  18. DUROTEP [Concomitant]
     Route: 062
     Dates: start: 20091005, end: 20091016
  19. DUROTEP [Concomitant]
     Route: 062
     Dates: start: 20090918, end: 20091004

REACTIONS (6)
  - ANURIA [None]
  - DYSPHAGIA [None]
  - HYPERTENSION [None]
  - PALMAR-PLANTAR ERYTHRODYSAESTHESIA SYNDROME [None]
  - PYREXIA [None]
  - SHOCK [None]
